FAERS Safety Report 15723175 (Version 2)
Quarter: 2019Q1

REPORT INFORMATION
  Report Type: Spontaneous
  Country: AU (occurrence: AU)
  Receive Date: 20181214
  Receipt Date: 20190111
  Transmission Date: 20190417
  Serious: Yes (Death, Congenital Anomaly)
  Sender: FDA-Public Use
  Company Number: AU-BAYER-2018-226118

PATIENT
  Age: 38 Year
  Sex: Female
  Weight: 96 kg

DRUGS (2)
  1. YASMIN [Suspect]
     Active Substance: DROSPIRENONE\ETHINYL ESTRADIOL
     Indication: CONTRACEPTION
     Dosage: UNK
     Route: 048
     Dates: start: 20040713, end: 20040911
  2. XENICAL [Concomitant]
     Active Substance: ORLISTAT
     Dosage: UNK
     Dates: start: 20040713

REACTIONS (5)
  - Pulmonary embolism [Fatal]
  - Deep vein thrombosis [Fatal]
  - Rash [None]
  - Upper respiratory tract infection [Fatal]
  - Pneumothorax [Fatal]

NARRATIVE: CASE EVENT DATE: 20040813
